FAERS Safety Report 5683473-6 (Version None)
Quarter: 2008Q1

REPORT INFORMATION
  Report Type: 
  Country: None (occurrence: None)
  Receive Date: 20080326
  Receipt Date: 20071219
  Transmission Date: 20080703
  Serious: Yes (Other)
  Sender: FDA-Public Use
  Company Number: 08-001

PATIENT

DRUGS (1)
  1. CEFTRIAXONE [Suspect]
     Dosage: 1 G

REACTIONS (2)
  - PHARMACEUTICAL PRODUCT COMPLAINT [None]
  - PYREXIA [None]
